FAERS Safety Report 12939826 (Version 1)
Quarter: 2016Q4

REPORT INFORMATION
  Report Type: Spontaneous
  Country: TR (occurrence: TR)
  Receive Date: 20161114
  Receipt Date: 20161114
  Transmission Date: 20170207
  Serious: Yes (Hospitalization, Other)
  Sender: FDA-Public Use
  Company Number: PHHY2016TR154805

PATIENT
  Age: 43 Year
  Sex: Female

DRUGS (2)
  1. AVIL [Suspect]
     Active Substance: PHENIRAMINE
     Indication: HYPERSENSITIVITY
     Route: 065
     Dates: start: 201602, end: 201602
  2. GLUKOFEN [Suspect]
     Active Substance: METFORMIN HYDROCHLORIDE
     Indication: INSULIN RESISTANCE
     Dosage: 1000 MG
     Route: 048
     Dates: end: 201602

REACTIONS (4)
  - Urticaria [Recovered/Resolved]
  - Diarrhoea [Recovered/Resolved]
  - Hypersensitivity [Recovered/Resolved]
  - Skin swelling [Recovered/Resolved]

NARRATIVE: CASE EVENT DATE: 201602
